FAERS Safety Report 16153691 (Version 2)
Quarter: 2019Q2

REPORT INFORMATION
  Report Type: Spontaneous
  Country: TH (occurrence: TH)
  Receive Date: 20190403
  Receipt Date: 20190417
  Transmission Date: 20190711
  Serious: Yes (Death, Hospitalization)
  Sender: FDA-Public Use
  Company Number: TH-BAXTER-2019BAX006440

PATIENT
  Age: 61 Year
  Sex: Female

DRUGS (1)
  1. DIANEAL [Suspect]
     Active Substance: CALCIUM CHLORIDE\DEXTROSE\MAGNESIUM CHLORIDE\SODIUM CHLORIDE\SODIUM LACTATE
     Indication: PERITONEAL DIALYSIS
     Dosage: 5 CYCLES IN 10 HOURS PER NIGHT
     Route: 033
     Dates: start: 20160203, end: 20190319

REACTIONS (5)
  - Vomiting [Unknown]
  - Hypophagia [Unknown]
  - Fatigue [Unknown]
  - Death [Fatal]
  - Nausea [Unknown]

NARRATIVE: CASE EVENT DATE: 20190319
